FAERS Safety Report 16791260 (Version 1)
Quarter: 2019Q3

REPORT INFORMATION
  Report Type: Spontaneous
  Country: US (occurrence: US)
  Receive Date: 20190719
  Receipt Date: 20190719
  Transmission Date: 20191005
  Serious: Yes (Death, Hospitalization)
  Sender: FDA-Public Use
  Company Number: None

PATIENT
  Age: 86 Year
  Sex: Male
  Weight: 86.5 kg

DRUGS (2)
  1. WARFARIN [Suspect]
     Active Substance: WARFARIN
     Indication: ATRIAL FIBRILLATION
     Route: 048
     Dates: start: 20120320, end: 20190212
  2. FLUCONAZOLE. [Suspect]
     Active Substance: FLUCONAZOLE
     Indication: MALASSEZIA INFECTION
     Route: 048
     Dates: start: 20190125, end: 20190227

REACTIONS (5)
  - International normalised ratio increased [None]
  - Gastric haemorrhage [None]
  - Neoplasm malignant [None]
  - Multiple organ dysfunction syndrome [None]
  - Mental impairment [None]

NARRATIVE: CASE EVENT DATE: 20190212
